FAERS Safety Report 6480450-2 (Version None)
Quarter: 2009Q4

REPORT INFORMATION
  Report Type: 
  Country: None (occurrence: None)
  Receive Date: 20091203
  Receipt Date: 20091118
  Transmission Date: 20100525
  Serious: Yes (Death)
  Sender: FDA-Public Use
  Company Number: AE 2009-152

PATIENT
  Sex: Male

DRUGS (1)
  1. FAZACLO ODT [Suspect]
     Dosage: 700 MG DAILY PO
     Route: 048
     Dates: start: 20060821, end: 20091106

REACTIONS (1)
  - RESPIRATORY TRACT INFECTION [None]
